FAERS Safety Report 8679650 (Version 2)
Quarter: 2012Q4

REPORT INFORMATION
  Report Type: 
  Country: FR (occurrence: FR)
  Receive Date: 20120724
  Receipt Date: 20120824
  Transmission Date: 20130627
  Serious: Yes (Life-Threatening, Hospitalization, Other)
  Sender: FDA-Public Use
  Company Number: FR-ELI_LILLY_AND_COMPANY-FR201206001265

PATIENT
  Age: 47 Year
  Sex: Male

DRUGS (6)
  1. ZYPADHERA [Suspect]
     Indication: SCHIZOPHRENIA, PARANOID TYPE
     Dosage: 405 mg, 2/W
     Route: 030
     Dates: start: 20120511
  2. OLANZAPINE [Suspect]
     Indication: SCHIZOPHRENIA, PARANOID TYPE
     Dosage: 20 mg, qd
     Route: 048
     Dates: end: 20120511
  3. OLANZAPINE [Suspect]
     Dosage: 20 mg, qd
     Route: 048
     Dates: start: 20120525
  4. LESCOL [Concomitant]
     Dosage: 40 mg, UNK
     Dates: start: 20120425
  5. NOCTAMIDE [Concomitant]
     Dosage: 1 mg, qd
     Dates: start: 20120424
  6. TRANXENE [Concomitant]
     Dosage: 10 mg, qd
     Dates: start: 20120521

REACTIONS (3)
  - Coma [Recovered/Resolved]
  - Somnolence [Recovered/Resolved]
  - Prescribed overdose [Recovered/Resolved]
